FAERS Safety Report 8103144-6 (Version None)
Quarter: 2011Q4

REPORT INFORMATION
  Report Type: 
  Country: None (occurrence: None)
  Receive Date: 20111222
  Receipt Date: 20110920
  Transmission Date: 20120403
  Serious: Yes (Other)
  Sender: FDA-Public Use
  Company Number: UTC-010369

PATIENT
  Age: 59 Year
  Sex: Female
  Weight: 61.3 kg

DRUGS (4)
  1. TYVASO [Suspect]
     Indication: PULMONARY ARTERIAL HYPERTENSION
     Dosage: 120 MCG  (30 MCG, 4 IN 1 D), INHALATION
     Route: 055
  2. ENBREL [Concomitant]
  3. ASPIRIN [Concomitant]
  4. DIURETICS (DIURETICS) [Concomitant]

REACTIONS (3)
  - HYPOTENSION [None]
  - WEIGHT DECREASED [None]
  - HAEMOGLOBIN DECREASED [None]
